FAERS Safety Report 9386084 (Version 2)
Quarter: 2013Q3

REPORT INFORMATION
  Report Type: Spontaneous
  Country: GB (occurrence: GB)
  Receive Date: 20130706
  Receipt Date: 20130717
  Transmission Date: 20140515
  Serious: Yes (Other)
  Sender: FDA-Public Use
  Company Number: GB-B.I. PHARMACEUTICALS,INC./RIDGEFIELD-2013-UK-01352UK

PATIENT
  Age: 65 Year
  Sex: Male
  Weight: 114.3 kg

DRUGS (11)
  1. MIRAPEXIN [Suspect]
     Indication: RESTLESS LEGS SYNDROME
     Dosage: 88 MCG
     Route: 048
     Dates: start: 2007, end: 20120521
  2. ASPIRIN [Concomitant]
  3. BISOPROLOL [Concomitant]
  4. CLONAZEPAM [Concomitant]
     Indication: RESTLESS LEGS SYNDROME
  5. DOXAZOSIN [Concomitant]
  6. GLYCERYL TRINITRATE [Concomitant]
  7. INSULIN [Concomitant]
  8. ISOSORBIDE MONONITRATE [Concomitant]
  9. METFORMIN [Concomitant]
  10. OMEPRAZOLE [Concomitant]
  11. RAMIPRIL [Concomitant]

REACTIONS (1)
  - Drug ineffective [Recovered/Resolved]
